FAERS Safety Report 12519511 (Version 3)
Quarter: 2016Q3

REPORT INFORMATION
  Report Type: Spontaneous
  Country: JP (occurrence: JP)
  Receive Date: 20160701
  Receipt Date: 20160915
  Transmission Date: 20161109
  Serious: Yes (Other)
  Sender: FDA-Public Use
  Company Number: JP-ROCHE-1787068

PATIENT
  Age: 67 Year
  Sex: Female

DRUGS (10)
  1. LUCENTIS [Suspect]
     Active Substance: RANIBIZUMAB
     Indication: RETINAL VEIN OCCLUSION
     Route: 050
     Dates: start: 20150914
  2. LUCENTIS [Suspect]
     Active Substance: RANIBIZUMAB
     Route: 050
     Dates: start: 20151221
  3. LUCENTIS [Suspect]
     Active Substance: RANIBIZUMAB
     Route: 050
     Dates: start: 20160314
  4. LUCENTIS [Suspect]
     Active Substance: RANIBIZUMAB
     Route: 050
     Dates: start: 20151028
  5. LUCENTIS [Suspect]
     Active Substance: RANIBIZUMAB
     Route: 050
     Dates: start: 20160120
  6. LUCENTIS [Suspect]
     Active Substance: RANIBIZUMAB
     Route: 050
     Dates: start: 20160629
  7. LUCENTIS [Suspect]
     Active Substance: RANIBIZUMAB
     Route: 050
     Dates: start: 20151118
  8. LUCENTIS [Suspect]
     Active Substance: RANIBIZUMAB
     Route: 050
     Dates: start: 20151130
  9. LUCENTIS [Suspect]
     Active Substance: RANIBIZUMAB
     Route: 050
     Dates: start: 20160330
  10. LUCENTIS [Suspect]
     Active Substance: RANIBIZUMAB
     Route: 050
     Dates: start: 20160706

REACTIONS (1)
  - Cerebral infarction [Unknown]

NARRATIVE: CASE EVENT DATE: 20160616
